FAERS Safety Report 5930686-1 (Version None)
Quarter: 2008Q4

REPORT INFORMATION
  Report Type: 
  Country: None (occurrence: None)
  Receive Date: 20081024
  Receipt Date: 20081024
  Transmission Date: 20090506
  Serious: No
  Sender: FDA-Public Use
  Company Number: None

PATIENT
  Age: 85 Year
  Sex: Female
  Weight: 59.4212 kg

DRUGS (2)
  1. RITUXAN [Suspect]
     Indication: NON-HODGKIN'S LYMPHOMA
     Dosage: 625MG IV TO BE GIVEN WEEKLY X 4
     Route: 042
     Dates: start: 20081013
  2. RITUXAN [Suspect]
     Indication: NON-HODGKIN'S LYMPHOMA
     Dosage: 625MG IV TO BE GIVEN WEEKLY X 4
     Route: 042
     Dates: start: 20081020

REACTIONS (5)
  - CHILLS [None]
  - FACIAL PAIN [None]
  - FLUSHING [None]
  - NAUSEA [None]
  - PRURITUS [None]
